FAERS Safety Report 5763909-2 (Version None)
Quarter: 2008Q2

REPORT INFORMATION
  Report Type: 
  Country: None (occurrence: None)
  Receive Date: 20080606
  Receipt Date: 20080606
  Transmission Date: 20081010
  Serious: No
  Sender: FDA-Public Use
  Company Number: None

PATIENT
  Age: 57 Year
  Sex: Male

DRUGS (1)
  1. FORADIL [Suspect]
     Dosage: 1 INHALATION TWICE DAILY INHAL
     Route: 055
     Dates: start: 20080604, end: 20080604

REACTIONS (1)
  - INCORRECT ROUTE OF DRUG ADMINISTRATION [None]
